FAERS Safety Report 23570493 (Version 1)
Quarter: 2024Q1

REPORT INFORMATION
  Report Type: Spontaneous
  Country: JP (occurrence: JP)
  Receive Date: 20240227
  Receipt Date: 20240227
  Transmission Date: 20240409
  Serious: Yes (Life-Threatening, Other)
  Sender: FDA-Public Use
  Company Number: JP-CHUGAI-2024005883

PATIENT
  Age: 3 Year
  Sex: Male
  Weight: 16.8 kg

DRUGS (6)
  1. CELLCEPT [Suspect]
     Active Substance: MYCOPHENOLATE MOFETIL
     Indication: Product used for unknown indication
     Dosage: UNK
     Route: 065
     Dates: end: 20230129
  2. RITUXAN [Suspect]
     Active Substance: RITUXIMAB
     Indication: Nephrotic syndrome
     Dosage: 250 MILLIGRAM
     Route: 065
     Dates: start: 20230111, end: 20230129
  3. RITUXAN [Suspect]
     Active Substance: RITUXIMAB
     Dosage: 250 MILLIGRAM
     Route: 065
     Dates: start: 20230907
  4. RITUXAN [Suspect]
     Active Substance: RITUXIMAB
     Dosage: 260 MILLIGRAM
     Route: 065
     Dates: start: 20240124
  5. NEORAL [Suspect]
     Active Substance: CYCLOSPORINE
     Indication: Product used for unknown indication
     Dosage: UNK
     Route: 065
     Dates: end: 20230129
  6. PREDNISOLONE [Suspect]
     Active Substance: PREDNISOLONE
     Indication: Nephrotic syndrome
     Dosage: UNK
     Route: 065
     Dates: end: 20230129

REACTIONS (4)
  - Disseminated intravascular coagulation [Recovering/Resolving]
  - Immunodeficiency [Unknown]
  - Varicella [Recovered/Resolved]
  - Bronchitis [Unknown]

NARRATIVE: CASE EVENT DATE: 20230129
